FAERS Safety Report 7482286-2 (Version None)
Quarter: 2011Q2

REPORT INFORMATION
  Report Type: 
  Country: None (occurrence: None)
  Receive Date: 20110516
  Receipt Date: 20110511
  Transmission Date: 20111010
  Serious: Yes (Other)
  Sender: FDA-Public Use
  Company Number: NO-PFIZER INC-2011100640

PATIENT
  Age: 3 Year
  Sex: Female

DRUGS (2)
  1. CLINDAMYCIN HCL [Suspect]
     Indication: SKIN INFECTION
     Dosage: UNK
     Route: 048
     Dates: start: 20110401, end: 20110401
  2. WARFARIN SODIUM [Interacting]
     Dosage: UNK
     Route: 048

REACTIONS (3)
  - INTERNATIONAL NORMALISED RATIO INCREASED [None]
  - DRUG INTERACTION [None]
  - PETECHIAE [None]
